FAERS Safety Report 8425510-1 (Version None)
Quarter: 2012Q2

REPORT INFORMATION
  Report Type: 
  Country: None (occurrence: None)
  Receive Date: 20120611
  Receipt Date: 20120528
  Transmission Date: 20120825
  Serious: Yes (Other)
  Sender: FDA-Public Use
  Company Number: AU-CELGENEUS-008-C5013-12033353

PATIENT
  Sex: Female

DRUGS (23)
  1. OXYCODONE HCL [Concomitant]
     Route: 065
     Dates: start: 20100503
  2. PANTOPRAZOLE SODIUM SESQUIHYDRATE [Concomitant]
     Indication: PROPHYLAXIS
     Route: 065
     Dates: start: 20100716
  3. ASPIRIN [Concomitant]
     Route: 065
     Dates: start: 20020101
  4. AMLODIPINE BESYLATE [Concomitant]
     Indication: HYPERTENSION
     Route: 065
     Dates: start: 20101001, end: 20101004
  5. MELPHALAN HYDROCHLORIDE [Suspect]
     Indication: MULTIPLE MYELOMA
     Dosage: 020 MG/KG
     Route: 065
     Dates: start: 20100521
  6. DOCUSATE SODIUM [Concomitant]
     Indication: CONSTIPATION
     Dosage: 50/8
     Route: 065
     Dates: start: 20100508
  7. LACTULOSE [Concomitant]
     Indication: CONSTIPATION
     Route: 065
     Dates: start: 20100510
  8. CALTRATE PLUS [Concomitant]
     Indication: HYPOCALCAEMIA
     Route: 065
     Dates: start: 20100706
  9. SENNOSIDE A+B [Concomitant]
     Indication: CONSTIPATION
     Dosage: 50/8
     Route: 065
     Dates: start: 20100508
  10. MELPHALAN HYDROCHLORIDE [Suspect]
     Dosage: 0.10 MG/KG
     Route: 065
     Dates: end: 20110321
  11. OXYCODONE HCL [Concomitant]
     Indication: MUSCULOSKELETAL PAIN
     Route: 065
     Dates: start: 20100503
  12. MOVIPREP [Concomitant]
     Indication: CONSTIPATION
     Route: 065
     Dates: start: 20100510
  13. AMLODIPINE BESYLATE [Concomitant]
     Route: 065
     Dates: start: 20101014
  14. ACETAMINOPHEN [Concomitant]
     Indication: MUSCULOSKELETAL PAIN
     Route: 065
     Dates: start: 20100502
  15. WARFARIN SODIUM [Concomitant]
     Route: 065
     Dates: start: 20101016
  16. ASPIRIN [Concomitant]
  17. THALIDOMIDE [Suspect]
     Indication: MULTIPLE MYELOMA
     Route: 048
     Dates: start: 20100521, end: 20110425
  18. PREDNISONE TAB [Suspect]
     Indication: MULTIPLE MYELOMA
     Dosage: 2MG/KG
     Route: 065
     Dates: start: 20100521, end: 20110321
  19. ALLOPURINOL [Concomitant]
     Indication: PROPHYLAXIS
     Route: 065
     Dates: start: 20100507
  20. METFORMIN HCL [Concomitant]
     Route: 065
     Dates: start: 20100501
  21. FUROSEMIDE [Concomitant]
     Route: 065
     Dates: start: 20101028
  22. POTASSIUM CHLORIDE [Concomitant]
     Indication: PROPHYLAXIS
     Route: 065
     Dates: start: 20101014
  23. SIMVASTATIN [Concomitant]
     Route: 065
     Dates: start: 20071201

REACTIONS (1)
  - REFRACTORY CYTOPENIA WITH MULTILINEAGE DYSPLASIA [None]
